FAERS Safety Report 4511023-6 (Version None)
Quarter: 2004Q4

REPORT INFORMATION
  Report Type: 
  Country: None (occurrence: None)
  Receive Date: 20041018
  Receipt Date: 20040928
  Transmission Date: 20050328
  Serious: No
  Sender: FDA-Public Use
  Company Number: 209321

PATIENT
  Age: 46 Year
  Sex: Female

DRUGS (11)
  1. XOLAIR [Suspect]
     Indication: ASTHMA
     Dosage: 300 MG, 1/MONTH, SUBCUTANEOUS
     Route: 058
     Dates: start: 20040302, end: 20040601
  2. PROVENTIL (ALBUTEROL SULFATE, ALBUTEROL) [Concomitant]
  3. ATROVENT [Concomitant]
  4. PULMICORT [Concomitant]
  5. SINGULAIR [Concomitant]
  6. FORADIL [Concomitant]
  7. PREDNISONE [Concomitant]
  8. ANTIBIOTICS NOS (ANTIBIOTICS NOS) [Concomitant]
  9. HYCODAN (HOMATROPINE METHYLBROMIDE, HYDROCODONE BITARTRATE) [Concomitant]
  10. BACTRIM [Concomitant]
  11. XOPENEX [Concomitant]

REACTIONS (1)
  - HEADACHE [None]
